FAERS Safety Report 5295154-1 (Version None)
Quarter: 2007Q2

REPORT INFORMATION
  Report Type: 
  Country: None (occurrence: None)
  Receive Date: 20070412
  Receipt Date: 20070410
  Transmission Date: 20071010
  Serious: Yes (Other)
  Sender: FDA-Public Use
  Company Number: GB-ROXANE LABORATORIES, INC-2007-DE-02070GD

PATIENT
  Age: 33 Year
  Sex: Female

DRUGS (4)
  1. MORPHINE [Suspect]
     Indication: PAIN
     Route: 048
  2. MORPHINE [Suspect]
     Route: 042
  3. MORPHINE [Suspect]
     Dosage: 400 MG - 600 MG
  4. MORPHINE [Suspect]
     Route: 037

REACTIONS (5)
  - COGNITIVE DISORDER [None]
  - CONSTIPATION [None]
  - DRUG EFFECT DECREASED [None]
  - POST LUMBAR PUNCTURE SYNDROME [None]
  - SEDATION [None]
